FAERS Safety Report 25468534 (Version 1)
Quarter: 2025Q2

REPORT INFORMATION
  Report Type: Spontaneous
  Country: US (occurrence: None)
  Receive Date: 20250621
  Receipt Date: 20250621
  Transmission Date: 20250716
  Serious: Yes (Hospitalization)
  Sender: FDA-CTU
  Company Number: None

PATIENT
  Age: 73 Year
  Sex: Male
  Weight: 104.8 kg

DRUGS (3)
  1. CYTARABINE [Suspect]
     Active Substance: CYTARABINE
     Dates: end: 20250530
  2. DEXAMETHASONE [Suspect]
     Active Substance: DEXAMETHASONE
     Dates: end: 20250528
  3. PONATINIB [Suspect]
     Active Substance: PONATINIB
     Dates: end: 20250618

REACTIONS (7)
  - Blood creatinine increased [None]
  - Asthenia [None]
  - Hypotension [None]
  - Abdominal pain [None]
  - Nausea [None]
  - Vomiting [None]
  - Intestinal obstruction [None]

NARRATIVE: CASE EVENT DATE: 20250619
